FAERS Safety Report 5236004-9 (Version None)
Quarter: 2007Q1

REPORT INFORMATION
  Report Type: 
  Country: None (occurrence: None)
  Receive Date: 20061208
  Receipt Date: 20060525
  Transmission Date: 20070707
  Serious: Yes (Other)
  Sender: FDA-Public Use
  Company Number: 2006UW10257

PATIENT
  Age: 61 Year
  Sex: Female
  Weight: 70.306 kg

DRUGS (5)
  1. CRESTOR [Suspect]
     Indication: BLOOD CHOLESTEROL INCREASED
     Dosage: 10 MG PO
     Route: 048
     Dates: start: 20060501
  2. DYAZIDE [Concomitant]
  3. POTASSIUM ACETATE [Concomitant]
  4. ESTRACE [Concomitant]
  5. LIPITOR /GB/ [Concomitant]

REACTIONS (4)
  - CONSTIPATION [None]
  - FOOD POISONING [None]
  - MUSCULAR WEAKNESS [None]
  - NAUSEA [None]
